FAERS Safety Report 5597972-9 (Version None)
Quarter: 2008Q1

REPORT INFORMATION
  Report Type: 
  Country: None (occurrence: None)
  Receive Date: 20080116
  Receipt Date: 20080107
  Transmission Date: 20080703
  Serious: Yes (Other)
  Sender: FDA-Public Use
  Company Number: GXKR2008TR00555

PATIENT
  Sex: Male

DRUGS (2)
  1. PREDNISOLONE [Suspect]
     Indication: IMMUNOSUPPRESSION
  2. TACROLIMUS [Suspect]
     Indication: IMMUNOSUPPRESSION

REACTIONS (6)
  - ANURIA [None]
  - BLOOD CREATINE INCREASED [None]
  - DYSPLASIA [None]
  - HYDRONEPHROSIS [None]
  - TRANSITIONAL CELL CANCER OF THE RENAL PELVIS AND URETER [None]
  - URETERIC STENOSIS [None]
